FAERS Safety Report 7791867-8 (Version None)
Quarter: 2011Q4

REPORT INFORMATION
  Report Type: 
  Country: None (occurrence: None)
  Receive Date: 20111003
  Receipt Date: 20110921
  Transmission Date: 20120403
  Serious: Yes (Hospitalization, Disabling)
  Sender: FDA-Public Use
  Company Number: CA-JNJFOC-20110205907

PATIENT
  Sex: Female
  Weight: 53 kg

DRUGS (2)
  1. REMICADE [Suspect]
     Indication: CROHN'S DISEASE
     Route: 042
     Dates: start: 20050101
  2. REMICADE [Suspect]
     Route: 042
     Dates: start: 20100722

REACTIONS (5)
  - ORGAN FAILURE [None]
  - SEPSIS [None]
  - PNEUMONIA LEGIONELLA [None]
  - LEG AMPUTATION [None]
  - POOR PERIPHERAL CIRCULATION [None]
